FAERS Safety Report 9395833 (Version 3)
Quarter: 2013Q4

REPORT INFORMATION
  Report Type: Spontaneous
  Country: US (occurrence: US)
  Receive Date: 20130711
  Receipt Date: 20131220
  Transmission Date: 20140711
  Serious: Yes (Other)
  Sender: FDA-Public Use
  Company Number: US-PFIZER INC-2013203019

PATIENT
  Age: 73 Year
  Sex: Female
  Weight: 47.62 kg

DRUGS (3)
  1. NEURONTIN [Suspect]
     Indication: NERVE INJURY
     Dosage: UNK
  2. NEURONTIN [Suspect]
     Dosage: 400 MG, 3X/DAY
     Dates: start: 200903
  3. RAMIPRIL [Concomitant]
     Indication: HYPERTENSION
     Dosage: 5 MG, 1X/DAY

REACTIONS (4)
  - Diabetes mellitus [Unknown]
  - Cervicobrachial syndrome [Unknown]
  - Hypoaesthesia [Unknown]
  - Drug ineffective [Unknown]
